FAERS Safety Report 5513676-2 (Version None)
Quarter: 2007Q4

REPORT INFORMATION
  Report Type: 
  Country: None (occurrence: None)
  Receive Date: 20071108
  Receipt Date: 20071026
  Transmission Date: 20080405
  Serious: Yes (Hospitalization)
  Sender: FDA-Public Use
  Company Number: 2007JP004970

PATIENT
  Age: 32 Year
  Sex: Female

DRUGS (4)
  1. TACROLIMUS [Suspect]
     Indication: RHEUMATOID ARTHRITIS
     Dosage: 1.5 MG, D, ORAL
     Route: 048
     Dates: start: 20060830
  2. TACROLIMUS [Suspect]
     Indication: RHEUMATOID ARTHRITIS
     Dosage: 1.5 MG, D, ORAL
     Route: 048
     Dates: start: 20061012
  3. PREDNISONE [Concomitant]
  4. LOXONIN (LOXOPROFEN) [Concomitant]

REACTIONS (1)
  - HAEMORRHAGIC OVARIAN CYST [None]
